FAERS Safety Report 5027175-8 (Version None)
Quarter: 2006Q2

REPORT INFORMATION
  Report Type: 
  Country: None (occurrence: None)
  Receive Date: 20060501
  Receipt Date: 20060202
  Transmission Date: 20061013
  Serious: No
  Sender: FDA-Public Use
  Company Number: 200610641BWH

PATIENT

DRUGS (1)
  1. NEXAVAR [Suspect]
     Dates: start: 20060128

REACTIONS (4)
  - DECREASED APPETITE [None]
  - MUSCLE SPASMS [None]
  - NAUSEA [None]
  - PAIN IN EXTREMITY [None]
